APPROVED DRUG PRODUCT: DEXLANSOPRAZOLE
Active Ingredient: DEXLANSOPRAZOLE
Strength: 60MG
Dosage Form/Route: CAPSULE, DELAYED RELEASE;ORAL
Application: A202666 | Product #002 | TE Code: AB
Applicant: TWI PHARMACEUTICALS INC
Approved: Sep 16, 2022 | RLD: No | RS: No | Type: RX